FAERS Safety Report 8041884-8 (Version None)
Quarter: 2012Q1

REPORT INFORMATION
  Report Type: 
  Country: None (occurrence: None)
  Receive Date: 20120112
  Receipt Date: 20120112
  Transmission Date: 20120608
  Serious: No
  Sender: FDA-Public Use
  Company Number: None

PATIENT
  Age: 58 Year
  Sex: Male
  Weight: 95.254 kg

DRUGS (1)
  1. EXCEDRIN (MIGRAINE) [Suspect]
     Indication: BACK PAIN
     Dosage: 2
     Route: 048
     Dates: start: 20111224, end: 20120110

REACTIONS (3)
  - CHEST DISCOMFORT [None]
  - PRODUCT QUALITY ISSUE [None]
  - INSOMNIA [None]
